FAERS Safety Report 24202262 (Version 1)
Quarter: 2024Q3

REPORT INFORMATION
  Report Type: Spontaneous
  Country: RU (occurrence: RU)
  Receive Date: 20240812
  Receipt Date: 20240812
  Transmission Date: 20241017
  Serious: Yes (Hospitalization, Other)
  Sender: MERCK
  Company Number: RU-009507513-2408RUS000246

PATIENT
  Age: 49 Year
  Sex: Female
  Weight: 52 kg

DRUGS (3)
  1. PEMBROLIZUMAB [Suspect]
     Active Substance: PEMBROLIZUMAB
     Indication: Ocular melanoma
     Dosage: UNK UNK, Q3W
     Route: 042
     Dates: start: 202010
  2. PEMBROLIZUMAB [Suspect]
     Active Substance: PEMBROLIZUMAB
     Dosage: UNK UNK, Q3W; DURING 5TH CYCLE OF THERAPY
     Route: 042
     Dates: end: 202101
  3. EUTHYROX [Concomitant]
     Active Substance: LEVOTHYROXINE SODIUM
     Indication: Hypothyroidism
     Dosage: 100 MICROGRAM
     Dates: start: 202101, end: 202107

REACTIONS (5)
  - Acute myocardial infarction [Recovered/Resolved with Sequelae]
  - Immune-mediated myocarditis [Recovered/Resolved with Sequelae]
  - Malignant neoplasm progression [Unknown]
  - Pericardial effusion [Not Recovered/Not Resolved]
  - Pulmonary arterial pressure increased [Unknown]

NARRATIVE: CASE EVENT DATE: 20210101
